FAERS Safety Report 13227396 (Version 2)
Quarter: 2017Q1

REPORT INFORMATION
  Report Type: Report from Study
  Country: CA (occurrence: CA)
  Receive Date: 20170213
  Receipt Date: 20170222
  Transmission Date: 20170428
  Serious: Yes (Other)
  Sender: FDA-Public Use
  Company Number: CA-AMGEN-CANSL2017019903

PATIENT
  Age: 82 Year
  Sex: Male

DRUGS (14)
  1. ARANESP [Suspect]
     Active Substance: DARBEPOETIN ALFA
     Indication: ANAEMIA
     Dosage: UNK
     Route: 065
  2. PREDNISONE. [Concomitant]
     Active Substance: PREDNISONE
     Dosage: 3 MG, QD
     Route: 065
  3. IRON [Concomitant]
     Active Substance: IRON
  4. VASOTEC [Concomitant]
     Active Substance: ENALAPRIL MALEATE
     Indication: HYPERTENSION
     Dosage: UNK
  5. PREDNISONE. [Concomitant]
     Active Substance: PREDNISONE
     Dosage: 5 MG, QD
     Route: 065
     Dates: start: 20170206
  6. PREDNISONE. [Concomitant]
     Active Substance: PREDNISONE
     Dosage: 7 MG, QD
     Route: 065
  7. CALCIUM [Concomitant]
     Active Substance: CALCIUM
  8. ENBREL [Suspect]
     Active Substance: ETANERCEPT
     Indication: RHEUMATOID ARTHRITIS
     Dosage: 50 MG, QWK
     Route: 058
     Dates: start: 20090610
  9. PREDNISONE. [Concomitant]
     Active Substance: PREDNISONE
     Dosage: 10 MG, QD
     Route: 065
  10. ASA [Concomitant]
     Active Substance: ASPIRIN
  11. PREDNISONE. [Concomitant]
     Active Substance: PREDNISONE
     Indication: GOUT
     Dosage: UNK
  12. PREDNISONE. [Concomitant]
     Active Substance: PREDNISONE
     Indication: RHEUMATOID ARTHRITIS
     Dosage: 20 MG, UNK
     Route: 065
     Dates: start: 201508
  13. WARFARIN [Concomitant]
     Active Substance: WARFARIN
     Indication: ATRIAL FIBRILLATION
     Dosage: 1 MG, QD
     Dates: start: 20100406, end: 2015
  14. STOOL SOFTENER [Concomitant]

REACTIONS (6)
  - Anaemia [Recovering/Resolving]
  - Fall [Unknown]
  - Renal impairment [Not Recovered/Not Resolved]
  - Joint effusion [Recovering/Resolving]
  - Gastrointestinal haemorrhage [Recovering/Resolving]
  - Rheumatoid arthritis [Unknown]

NARRATIVE: CASE EVENT DATE: 201508
